FAERS Safety Report 6945109-3 (Version None)
Quarter: 2010Q3

REPORT INFORMATION
  Report Type: 
  Country: None (occurrence: None)
  Receive Date: 20100827
  Receipt Date: 20100820
  Transmission Date: 20110219
  Serious: Yes (Other)
  Sender: FDA-Public Use
  Company Number: US-JNJFOC-20100807287

PATIENT
  Sex: Female
  Weight: 80.74 kg

DRUGS (7)
  1. REMICADE [Suspect]
     Indication: COLITIS ULCERATIVE
     Route: 042
  2. LORATADINE [Concomitant]
  3. VITAMIN B1 TAB [Concomitant]
     Indication: NUTRITIONAL SUPPORT
  4. VITAMIN B6 [Concomitant]
     Indication: NUTRITIONAL SUPPORT
  5. EFFEXOR [Concomitant]
     Indication: DEPRESSION
  6. ASACOL [Concomitant]
  7. HYDROCODONE BITARTRATE [Concomitant]
     Indication: PAIN

REACTIONS (2)
  - HEPATIC NEOPLASM MALIGNANT [None]
  - OVARIAN CANCER METASTATIC [None]
